FAERS Safety Report 24684774 (Version 1)
Quarter: 2024Q4

REPORT INFORMATION
  Report Type: Spontaneous
  Country: FR (occurrence: FR)
  Receive Date: 20241202
  Receipt Date: 20241202
  Transmission Date: 20250115
  Serious: Yes (Hospitalization, Other)
  Sender: CHEPLAPHARM
  Company Number: None

PATIENT
  Age: 37 Year
  Sex: Male

DRUGS (4)
  1. CLONAZEPAM [Suspect]
     Active Substance: CLONAZEPAM
  2. COCAINE [Suspect]
     Active Substance: COCAINE
  3. LYRICA [Suspect]
     Active Substance: PREGABALIN
  4. OXAZEPAM [Suspect]
     Active Substance: OXAZEPAM

REACTIONS (4)
  - Substance use disorder [Unknown]
  - Altered state of consciousness [Unknown]
  - Miosis [Unknown]
  - Amnesia [Unknown]

NARRATIVE: CASE EVENT DATE: 20240804
